FAERS Safety Report 24071281 (Version 1)
Quarter: 2024Q3

REPORT INFORMATION
  Report Type: Report from Study
  Country: GB (occurrence: GB)
  Receive Date: 20240710
  Receipt Date: 20240710
  Transmission Date: 20241017
  Serious: No
  Sender: ROCHE
  Company Number: GB-ROCHE-3102041

PATIENT
  Sex: Female

DRUGS (1)
  1. RISDIPLAM [Suspect]
     Active Substance: RISDIPLAM
     Indication: Spinal muscular atrophy
     Dosage: STRENGTH: 0.75MG/ML DOSE: 5MG (6.6 ML ONCE DAILY), 12/APR/2021
     Route: 048
     Dates: start: 202103

REACTIONS (2)
  - Lower respiratory tract infection [Unknown]
  - Illness [Unknown]
